FAERS Safety Report 5231424-0 (Version None)
Quarter: 2007Q1

REPORT INFORMATION
  Report Type: 
  Country: None (occurrence: None)
  Receive Date: 20070206
  Receipt Date: 20070123
  Transmission Date: 20070707
  Serious: Yes (Hospitalization)
  Sender: FDA-Public Use
  Company Number: US-SHR-US-2006-014620

PATIENT
  Age: 42 Year
  Sex: Female
  Weight: 48.98 kg

DRUGS (10)
  1. GM-CSF (9874) [Suspect]
     Indication: CROHN'S DISEASE
     Dosage: UNK, 1X/DAY
     Route: 058
     Dates: start: 20060426, end: 20060606
  2. LANSOPRAZOLE [Concomitant]
     Dosage: 30 MG, 2X/DAY
     Dates: start: 19970101
  3. ONDANSETRON [Concomitant]
     Indication: NAUSEA
     Dosage: 4 MG, AS REQ'D
     Dates: start: 19970101
  4. FENTANYL TRANSDERMAL SYSTEM [Concomitant]
     Indication: FIBROMYALGIA
     Route: 062
     Dates: start: 20000101
  5. HYOSCYAMINE [Concomitant]
     Indication: ABDOMINAL PAIN
     Dosage: UNK, AS REQ'D
     Dates: start: 20051212
  6. IBANDRONATE SODIUM [Concomitant]
     Indication: OSTEOPOROSIS
     Dates: start: 20051219
  7. NORCO [Concomitant]
     Indication: FIBROMYALGIA
     Dosage: (5/325 MG), AS REQ'D
     Dates: start: 20051215
  8. ESTRADIOL [Concomitant]
     Indication: HORMONE REPLACEMENT THERAPY
     Dosage: .05 MG, DAILY
     Dates: start: 20051215
  9. PENTASA [Concomitant]
     Dosage: 1000 MG BID
     Route: 048
     Dates: start: 20020101
  10. RIFAXIMIN [Concomitant]
     Dosage: 2 TAB(S), 3X/DAY
     Route: 048

REACTIONS (1)
  - PERINEAL ABSCESS [None]
